FAERS Safety Report 6403966-3 (Version None)
Quarter: 2009Q4

REPORT INFORMATION
  Report Type: 
  Country: None (occurrence: None)
  Receive Date: 20091015
  Receipt Date: 20091015
  Transmission Date: 20100525
  Serious: Yes (Death, Hospitalization)
  Sender: FDA-Public Use
  Company Number: None

PATIENT
  Age: 62 Year
  Sex: Female
  Weight: 79 kg

DRUGS (17)
  1. FLUOROURACIL [Suspect]
     Indication: COLON CANCER
     Dosage: 725 MG, UNKNOWN INTRAVENOUS
     Route: 042
     Dates: start: 20090721, end: 20090721
  2. FLUOROURACIL [Suspect]
     Indication: COLON CANCER
     Dosage: 4325 MG, UNKNOWN, INTRAVENOUS
     Dates: start: 20090727, end: 20090729
  3. CALCIUM FOLINATE [Concomitant]
  4. OXALIPLATIN [Concomitant]
  5. METOCLOPRAMIDE [Concomitant]
  6. KYTRIL [Concomitant]
  7. DEXAMETHASONE [Concomitant]
  8. COGENTIN [Concomitant]
  9. LOPERAMIDE [Concomitant]
  10. ONDANSETRON [Concomitant]
  11. OXYCONTIN [Concomitant]
  12. ENDONE [Concomitant]
  13. NICORETTE /01033301/) [Concomitant]
  14. LEVOTHYROXINE SODIUM [Concomitant]
  15. ATORVASTATIN [Concomitant]
  16. PARACETAMOL [Concomitant]
  17. IBUPROFEN [Concomitant]

REACTIONS (13)
  - CARDIAC ARREST [None]
  - DYSTONIA [None]
  - FALL [None]
  - HYPOTHERMIA [None]
  - HYPOXIC ENCEPHALOPATHY [None]
  - INTRACRANIAL HAEMATOMA [None]
  - MUSCLE RIGIDITY [None]
  - MYOCARDIAL INFARCTION [None]
  - RIB FRACTURE [None]
  - SUDDEN DEATH [None]
  - TREMOR [None]
  - TRISMUS [None]
  - VENTRICULAR FIBRILLATION [None]
